FAERS Safety Report 11319641 (Version 2)
Quarter: 2015Q3

REPORT INFORMATION
  Report Type: Report from Study
  Country: US (occurrence: US)
  Receive Date: 20150729
  Receipt Date: 20150908
  Transmission Date: 20151125
  Serious: Yes (Other)
  Sender: FDA-Public Use
  Company Number: US-JNJFOC-20150714848

PATIENT
  Age: 81 Year
  Sex: Female
  Weight: 78.47 kg

DRUGS (4)
  1. LEVOTHYROXINE. [Concomitant]
     Active Substance: LEVOTHYROXINE
     Indication: THYROID DISORDER
     Route: 065
  2. XARELTO [Suspect]
     Active Substance: RIVAROXABAN
     Indication: THROMBOSIS
     Route: 048
     Dates: start: 20150424, end: 20150514
  3. AVAPRO [Concomitant]
     Active Substance: IRBESARTAN
     Indication: BLOOD PRESSURE ABNORMAL
     Route: 065
     Dates: start: 2005
  4. XARELTO [Suspect]
     Active Substance: RIVAROXABAN
     Indication: THROMBOSIS
     Dosage: DINNER TIME
     Route: 048
     Dates: start: 20150515

REACTIONS (10)
  - Amnesia [Not Recovered/Not Resolved]
  - Blood count abnormal [Not Recovered/Not Resolved]
  - Nausea [Not Recovered/Not Resolved]
  - Skin ulcer [Not Recovered/Not Resolved]
  - Pruritus generalised [Not Recovered/Not Resolved]
  - Erythema [Not Recovered/Not Resolved]
  - Hypoaesthesia [Not Recovered/Not Resolved]
  - Blood iron decreased [Not Recovered/Not Resolved]
  - Blood glucose increased [Not Recovered/Not Resolved]
  - Osteoarthritis [Not Recovered/Not Resolved]

NARRATIVE: CASE EVENT DATE: 2015
